FAERS Safety Report 18771479 (Version 1)
Quarter: 2021Q1

REPORT INFORMATION
  Report Type: Spontaneous
  Country: US (occurrence: US)
  Receive Date: 20210121
  Receipt Date: 20210121
  Transmission Date: 20210419
  Serious: No
  Sender: FDA-Public Use
  Company Number: US-PERRIGO-20US007550

PATIENT
  Age: 83 Year
  Sex: Male
  Weight: 85.71 kg

DRUGS (11)
  1. BANOPHEN [Concomitant]
     Active Substance: DIPHENHYDRAMINE HYDROCHLORIDE
     Indication: ARRHYTHMIA
     Dosage: UNK, QHS
     Route: 048
     Dates: start: 20200518
  2. IBUPROFEN. [Suspect]
     Active Substance: IBUPROFEN
     Dosage: 200 MG, SINGLE
     Route: 048
     Dates: start: 20200519, end: 20200519
  3. BANOPHEN [Concomitant]
     Active Substance: DIPHENHYDRAMINE HYDROCHLORIDE
     Indication: PRURITUS
  4. BANOPHEN [Concomitant]
     Active Substance: DIPHENHYDRAMINE HYDROCHLORIDE
     Indication: SUPRAVENTRICULAR EXTRASYSTOLES
  5. NITRIC OXIDE. [Concomitant]
     Active Substance: NITRIC OXIDE
     Indication: SUPPLEMENTATION THERAPY
     Dosage: UNK, UNK
     Route: 048
  6. CENTRUM SILVER                     /02363801/ [Concomitant]
     Active Substance: MINERALS\VITAMINS
     Indication: SUPPLEMENTATION THERAPY
     Dosage: UNK, UNK
     Route: 048
  7. BANOPHEN [Concomitant]
     Active Substance: DIPHENHYDRAMINE HYDROCHLORIDE
     Indication: HYPERSENSITIVITY
  8. L?CITRULLINE [Concomitant]
     Active Substance: CITRULLINE
     Indication: SUPPLEMENTATION THERAPY
     Dosage: UNK, UNK
     Route: 048
  9. IBUPROFEN. [Suspect]
     Active Substance: IBUPROFEN
     Indication: ARTHRALGIA
     Dosage: 200 MG, TWICE
     Route: 048
     Dates: start: 20200518, end: 20200518
  10. TURMERIC                           /01079602/ [Concomitant]
     Active Substance: HERBALS\TURMERIC
     Indication: SUPPLEMENTATION THERAPY
     Dosage: UNK
     Route: 065
  11. L?ARGININE                         /00126101/ [Concomitant]
     Active Substance: ARGININE
     Indication: SUPPLEMENTATION THERAPY
     Dosage: UNK, UNK
     Route: 048

REACTIONS (1)
  - Pruritus [Recovered/Resolved]

NARRATIVE: CASE EVENT DATE: 20200520
